FAERS Safety Report 5872152-8 (Version None)
Quarter: 2008Q3

REPORT INFORMATION
  Report Type: 
  Country: None (occurrence: None)
  Receive Date: 20080905
  Receipt Date: 20080825
  Transmission Date: 20090109
  Serious: Yes (Death, Hospitalization)
  Sender: FDA-Public Use
  Company Number: IN-BRISTOL-MYERS SQUIBB COMPANY-14294995

PATIENT
  Age: 37 Year
  Sex: Male
  Weight: 61 kg

DRUGS (6)
  1. ABATACEPT [Suspect]
     Indication: COLITIS ULCERATIVE
     Route: 042
     Dates: start: 20070906, end: 20080716
  2. BLINDED: PLACEBO [Suspect]
     Indication: COLITIS ULCERATIVE
     Route: 042
     Dates: start: 20070906, end: 20080716
  3. MESACOL [Concomitant]
     Dates: start: 20050301, end: 20080818
  4. FOLIC ACID [Concomitant]
     Dates: start: 20050301, end: 20080818
  5. RABEPRAZOLE SODIUM [Concomitant]
     Dates: start: 20070111, end: 20080818
  6. PREDNISOLONE [Concomitant]
     Dates: start: 20070111, end: 20080819

REACTIONS (3)
  - PNEUMONIA HERPES VIRAL [None]
  - SEPSIS [None]
  - VARICELLA [None]
